FAERS Safety Report 20505326 (Version 1)
Quarter: 2022Q1

REPORT INFORMATION
  Report Type: Spontaneous
  Country: GB (occurrence: GB)
  Receive Date: 20220223
  Receipt Date: 20220223
  Transmission Date: 20220424
  Serious: Yes (Other)
  Sender: FDA-Public Use
  Company Number: GB-MHRA-TPP3439035C7102208YC1643981522142

PATIENT
  Age: 74 Year
  Sex: Female
  Weight: 78 kg

DRUGS (8)
  1. ATORVASTATIN [Suspect]
     Active Substance: ATORVASTATIN
     Indication: Product used for unknown indication
     Dosage: 20 MILLIGRAM, TAKE ONE AT NIGHT
     Route: 065
     Dates: start: 20210111, end: 20220204
  2. BECONASE AQ [Concomitant]
     Active Substance: BECLOMETHASONE DIPROPIONATE MONOHYDRATE
     Indication: Product used for unknown indication
     Dosage: TWO PUFFS TWICE DAILY, REDUCING TO TWO PUFFS ON...
     Route: 065
     Dates: start: 20210111
  3. CARBOMER 974P [Concomitant]
     Indication: Product used for unknown indication
     Dosage: USE TO EYES AT NIGHT
     Route: 065
     Dates: start: 20210111, end: 20220204
  4. FLUCLOXACILLIN [Concomitant]
     Active Substance: FLUCLOXACILLIN
     Indication: Product used for unknown indication
     Dosage: 1 DOSAGE FORM, QID
     Route: 065
     Dates: start: 20220118, end: 20220125
  5. HYPROMELLOSES [Concomitant]
     Active Substance: HYPROMELLOSES
     Indication: Product used for unknown indication
     Dosage: ONE DROP AS NEEDED
     Route: 065
     Dates: start: 20210111
  6. LACRI-LUBE [Concomitant]
     Indication: Product used for unknown indication
     Dosage: USE AT BED TIME
     Route: 065
     Dates: start: 20210111
  7. LORATADINE [Concomitant]
     Active Substance: LORATADINE
     Indication: Product used for unknown indication
     Dosage: TAKE ONE DAILY AS REQUIRED
     Route: 065
     Dates: start: 20210111
  8. METFORMIN HYDROCHLORIDE [Concomitant]
     Active Substance: METFORMIN HYDROCHLORIDE
     Indication: Product used for unknown indication
     Dosage: TAKE ONE DAILY (THIS IS A BRANDED VERSION OF ME...
     Route: 065
     Dates: start: 20210111

REACTIONS (1)
  - Myalgia [Recovered/Resolved]

NARRATIVE: CASE EVENT DATE: 20220204
